FAERS Safety Report 9527805 (Version 1)
Quarter: 2013Q1

REPORT INFORMATION
  Report Type: Spontaneous
  Country: US (occurrence: None)
  Receive Date: 20130314
  Receipt Date: 20130314
  Transmission Date: 20140127
  Serious: Yes (Hospitalization)
  Sender: FDA-Public Use
  Company Number: 2012PROUSA02441

PATIENT
  Age: 85 Year
  Sex: Male
  Weight: 68 kg

DRUGS (9)
  1. PROVENGE [Suspect]
     Indication: PROSTATE CANCER METASTATIC
     Dosage: 250 ML, SINGLE, INTRAVENOUS
     Route: 042
     Dates: start: 20121210, end: 20121210
  2. TAMSULOSIN (TAMSULOSIN) [Concomitant]
  3. AMLODIPINE (AMLODIPINE) [Concomitant]
  4. ATORVASTATIN (ATORVASTATIN CALCIUM) [Concomitant]
  5. TUMS (CALCIUM CARBONATE, MEGNESIUM CARBONATE, MAGNESIUM TRISILICATE)? [Concomitant]
  6. COLACE (DOCUSATE SODIUM) [Concomitant]
  7. CENTRUM SILVER (ASCORBIC ACID, BIOTIN, CALCIUM, CALCIUM PANTOTHENATE, CHLORIDE, CHROMIUM, COLECALCIFEROL, COPPER, CYANOCOBALAMIN, FOLIC ACID, LODINE, IRON, MAGNESIUM, MANGANESE, MOLYBDENUM, NICKEL, NICOTINAMIDE, PHOSPHORUS, PHYTOMENADIONE, POTASSIUM, PYRIDOXINE HYDROCHLORIDE, RETINOL, RIBOFLAVIN, SELENIUM, SILICON DIOXIDE, THIAMINE HYDROCHLORIDE, TOCOPHEROL, VANADIN, ZINC) [Concomitant]
  8. ASPIRIN (ACETYLSALICYTIC ACID) [Concomitant]
  9. GARLIC (GARLIC) [Concomitant]

REACTIONS (1)
  - Cerebrovascular accident [None]
